FAERS Safety Report 10414922 (Version 1)
Quarter: 2014Q2

REPORT INFORMATION
  Report Type: Spontaneous
  Country: US (occurrence: None)
  Receive Date: 20140514
  Receipt Date: 20140514
  Transmission Date: 20141212
  Serious: Yes (Hospitalization)
  Sender: FDA-Public Use
  Company Number: 104205U

PATIENT
  Sex: Male
  Weight: 129.3 kg

DRUGS (2)
  1. CIMZIA [Suspect]
     Indication: CROHN^S DISEASE
     Dosage: 1X4 WEEKS
     Route: 058
     Dates: start: 201209
  2. DILAUDID/00080902/ [Concomitant]

REACTIONS (2)
  - Crohn^s disease [None]
  - Drug dose omission [None]
